FAERS Safety Report 17033716 (Version 2)
Quarter: 2019Q4

REPORT INFORMATION
  Report Type: Spontaneous
  Country: PL (occurrence: PL)
  Receive Date: 20191114
  Receipt Date: 20191120
  Transmission Date: 20200122
  Serious: Yes (Death, Other)
  Sender: FDA-Public Use
  Company Number: PL-GILEAD-2019-0436418

PATIENT
  Age: 48 Year
  Sex: Male

DRUGS (11)
  1. TIVICAY [Concomitant]
     Active Substance: DOLUTEGRAVIR SODIUM
  2. NEUPOGEN [Concomitant]
     Active Substance: FILGRASTIM
  3. TRUVADA [Suspect]
     Active Substance: EMTRICITABINE\TENOFOVIR DISOPROXIL FUMARATE
     Indication: HIV INFECTION
     Dosage: UNK
     Route: 065
  4. MEROPENEM. [Concomitant]
     Active Substance: MEROPENEM
  5. LINEZOLID. [Concomitant]
     Active Substance: LINEZOLID
  6. PLATELETS [Concomitant]
     Active Substance: HUMAN PLATELET, ALLOGENIC
  7. CITALOPRAM [Concomitant]
     Active Substance: CITALOPRAM HYDROBROMIDE
  8. RED BLOOD CELLS [Concomitant]
     Active Substance: HUMAN RED BLOOD CELL
  9. VORICONAZOLE. [Concomitant]
     Active Substance: VORICONAZOLE
  10. ALBUMIN [Concomitant]
     Active Substance: ALBUMIN HUMAN
  11. PENTACARINAT [Concomitant]
     Active Substance: PENTAMIDINE ISETHIONATE

REACTIONS (3)
  - Pancytopenia [Fatal]
  - Immune reconstitution inflammatory syndrome [Fatal]
  - Pneumonia [Fatal]
